FAERS Safety Report 4772508-0 (Version None)
Quarter: 2005Q3

REPORT INFORMATION
  Report Type: 
  Country: None (occurrence: None)
  Receive Date: 20050916
  Receipt Date: 20050916
  Transmission Date: 20060218
  Serious: Yes (Death)
  Sender: FDA-Public Use
  Company Number: None

PATIENT
  Age: 46 Year
  Sex: Male
  Weight: 92.0802 kg

DRUGS (3)
  1. MEMANTINE HCL [Suspect]
     Indication: DEMENTIA
     Dosage: 5 MG QAM PO
     Route: 048
     Dates: start: 20050906, end: 20050914
  2. SINEMET CR [Concomitant]
  3. TYLENOL [Concomitant]

REACTIONS (1)
  - DEATH [None]
